FAERS Safety Report 9892150 (Version 5)
Quarter: 2014Q1

REPORT INFORMATION
  Report Type: Report from Study
  Country: CA (occurrence: CA)
  Receive Date: 20140212
  Receipt Date: 20140312
  Transmission Date: 20141002
  Serious: Yes (Hospitalization)
  Sender: FDA-Public Use
  Company Number: CA-ROCHE-1338434

PATIENT
  Age: 65 Year
  Sex: Male
  Weight: 80.8 kg

DRUGS (2)
  1. AVASTIN [Suspect]
     Indication: GLIOBLASTOMA
     Route: 042
     Dates: start: 20140107
  2. DEXAMETHASONE [Concomitant]

REACTIONS (5)
  - Convulsion [Unknown]
  - Hemiplegia [Recovered/Resolved]
  - Coma [Unknown]
  - Blood pressure increased [Unknown]
  - Asthenia [Not Recovered/Not Resolved]
